FAERS Safety Report 9200728 (Version 2)
Quarter: 2013Q2

REPORT INFORMATION
  Report Type: Spontaneous
  Country: CA (occurrence: CA)
  Receive Date: 20130401
  Receipt Date: 20130404
  Transmission Date: 20140414
  Serious: Yes (Other)
  Sender: FDA-Public Use
  Company Number: CA-RANBAXY-2013US-66693

PATIENT
  Age: 61 Year
  Sex: Female
  Weight: 86 kg

DRUGS (5)
  1. AMOXICILLIN [Suspect]
     Indication: PRODUCT USED FOR UNKNOWN INDICATION
     Dosage: 500 MG, TID
     Route: 048
     Dates: end: 20120522
  2. COVERSYL [Suspect]
     Indication: HYPERTENSION
     Dosage: 4 MG, QD
     Route: 048
     Dates: start: 20120416, end: 20120513
  3. TECTA [Suspect]
     Indication: GASTROOESOPHAGEAL REFLUX DISEASE
     Dosage: 40 MG, QD
     Route: 048
     Dates: start: 20120416, end: 20120522
  4. ATENOLOL [Concomitant]
     Indication: HYPERTENSION
     Dosage: UNK
     Route: 065
     Dates: start: 20130227
  5. ZOMIG [Concomitant]
     Indication: MIGRAINE
     Dosage: UNK
     Route: 065
     Dates: start: 20130227

REACTIONS (5)
  - Bile duct cancer [Unknown]
  - Pancreatic mass [Unknown]
  - Petechiae [Unknown]
  - Jaundice cholestatic [Unknown]
  - Diarrhoea [Unknown]
